FAERS Safety Report 15730191 (Version 1)
Quarter: 2018Q4

REPORT INFORMATION
  Report Type: Report from Study
  Country: GT (occurrence: GT)
  Receive Date: 20181217
  Receipt Date: 20181217
  Transmission Date: 20190205
  Serious: Yes (Other)
  Sender: FDA-Public Use
  Company Number: GT-SA-2018SA324242

PATIENT
  Age: 77 Year
  Sex: Female

DRUGS (1)
  1. INSULIN GLARGINE [Suspect]
     Active Substance: INSULIN GLARGINE
     Indication: DIABETES MELLITUS
     Dosage: 27 IU, QD
     Route: 058

REACTIONS (3)
  - Cataract [Recovered/Resolved with Sequelae]
  - Visual impairment [Recovered/Resolved with Sequelae]
  - Dementia Alzheimer^s type [Recovered/Resolved with Sequelae]

NARRATIVE: CASE EVENT DATE: 2014
